FAERS Safety Report 5532813-7 (Version None)
Quarter: 2007Q4

REPORT INFORMATION
  Report Type: 
  Country: None (occurrence: None)
  Receive Date: 20071130
  Receipt Date: 20071130
  Transmission Date: 20080405
  Serious: Yes (Other)
  Sender: FDA-Public Use
  Company Number: None

PATIENT
  Age: 48 Year
  Sex: Female
  Weight: 83.9154 kg

DRUGS (3)
  1. CIPROFLOXACIN HCL [Suspect]
     Indication: SINUS DISORDER
     Dosage: 1 TABLET TWICE DAILY AFTER PO
     Route: 048
     Dates: start: 20071115, end: 20071122
  2. PREDNISONE [Concomitant]
  3. CLAIRITIN [Concomitant]

REACTIONS (2)
  - CONDITION AGGRAVATED [None]
  - DRUG INEFFECTIVE [None]
